FAERS Safety Report 10143995 (Version 1)
Quarter: 2014Q2

REPORT INFORMATION
  Report Type: Other
  Country: JP (occurrence: JP)
  Receive Date: 20140430
  Receipt Date: 20140430
  Transmission Date: 20141212
  Serious: Yes (Death)
  Sender: FDA-Public Use
  Company Number: JP-BRISTOL-MYERS SQUIBB COMPANY-20684932

PATIENT
  Age: 50 Year
  Sex: Female

DRUGS (7)
  1. ABILIFY [Suspect]
     Indication: SCHIZOPHRENIA
     Route: 048
  2. RISPERIDONE [Concomitant]
     Dosage: LONG-ACTING INJECTABLE SOLUTION
  3. MAGNESIUM OXIDE [Concomitant]
  4. QUETIAPINE FUMARATE [Concomitant]
  5. NITRAZEPAM [Concomitant]
  6. BROTIZOLAM [Concomitant]
  7. SENNOSIDE A+B [Concomitant]

REACTIONS (1)
  - Death [Fatal]
